FAERS Safety Report 14045885 (Version 2)
Quarter: 2018Q1

REPORT INFORMATION
  Report Type: Spontaneous
  Country: US (occurrence: US)
  Receive Date: 20171005
  Receipt Date: 20180129
  Transmission Date: 20180508
  Serious: Yes (Hospitalization)
  Sender: FDA-Public Use
  Company Number: US-SA-2017SA153957

PATIENT
  Age: 33 Year
  Sex: Female
  Weight: 47.17 kg

DRUGS (20)
  1. EPINEPHRINE. [Concomitant]
     Active Substance: EPINEPHRINE
     Indication: ANAPHYLACTIC REACTION
     Route: 030
     Dates: start: 20170601
  2. METHADONE [Concomitant]
     Active Substance: METHADONE HYDROCHLORIDE
     Dosage: DOSE: 1 TABLET
     Route: 048
     Dates: start: 20170411
  3. OXYBUTYNIN. [Concomitant]
     Active Substance: OXYBUTYNIN CHLORIDE
     Dosage: DOSE: 1 TABLET
     Route: 048
     Dates: start: 20170406
  4. OXYCODONE [Concomitant]
     Active Substance: OXYCODONE
     Dosage: DOSE: 3 TAB EVERY 6 HRS AS NEEDED
     Route: 048
     Dates: start: 20171020
  5. GABAPENTIN. [Concomitant]
     Active Substance: GABAPENTIN
     Dosage: DOSE: 1 CAPSULE
     Route: 048
     Dates: start: 20170104
  6. FAMOTIDINE. [Concomitant]
     Active Substance: FAMOTIDINE
     Dosage: DOSE: 1 DOSE
     Route: 048
     Dates: start: 20170101
  7. CEREZYME [Suspect]
     Active Substance: IMIGLUCERASE
     Indication: GAUCHER^S DISEASE
     Dosage: DOSE:50.87 UNIT(S)/KILOGRAM BODYWEIGHT
     Route: 041
     Dates: start: 19940728
  8. DOXYCYCLINE. [Concomitant]
     Active Substance: DOXYCYCLINE
     Dosage: DOSE: 1 CAPSULE
     Route: 048
     Dates: start: 20161003
  9. VITAMIN C [Concomitant]
     Active Substance: ASCORBIC ACID
     Dosage: DOSE: 1 CAPSULE
     Route: 048
     Dates: start: 20160428
  10. TYLENOL EXTRA STRENGTH [Concomitant]
     Active Substance: ACETAMINOPHEN
     Dosage: DOSE: 1 DOSE
     Route: 048
     Dates: start: 20160426
  11. CEREZYME [Suspect]
     Active Substance: IMIGLUCERASE
     Indication: LIPIDOSIS
     Dosage: DOSE:50.87 UNIT(S)/KILOGRAM BODYWEIGHT
     Route: 041
     Dates: start: 19940728
  12. NORMAL SALINE [Concomitant]
     Active Substance: SODIUM CHLORIDE
     Indication: MEDICATION DILUTION
     Dosage: FREQUENCY: AS DIRECTED
     Route: 065
     Dates: start: 20170601
  13. CEREZYME [Suspect]
     Active Substance: IMIGLUCERASE
     Indication: LIPIDOSIS
     Dosage: DOSE:50.87 UNIT(S)/KILOGRAM BODYWEIGHT
     Route: 041
     Dates: start: 19940728
  14. CEREZYME [Suspect]
     Active Substance: IMIGLUCERASE
     Indication: GAUCHER^S DISEASE
     Dosage: DOSE:50.87 UNIT(S)/KILOGRAM BODYWEIGHT
     Route: 041
     Dates: start: 19940728
  15. CEPHALEXIN. [Concomitant]
     Active Substance: CEPHALEXIN
     Dosage: DOSE: 1 CAPSULE
     Route: 048
     Dates: start: 20170430
  16. OXYCODONE [Concomitant]
     Active Substance: OXYCODONE
     Dosage: DOSE: 3 TAB EVERY 6 HRS AS NEEDED
     Route: 048
     Dates: start: 20170406
  17. AUGMENTIN [Concomitant]
     Active Substance: AMOXICILLIN\CLAVULANATE POTASSIUM
     Route: 048
     Dates: start: 20171020
  18. MORPHINE [Concomitant]
     Active Substance: MORPHINE
     Dosage: DOSE: 1 TABLET
     Route: 048
     Dates: start: 20161130
  19. CEREZYME [Suspect]
     Active Substance: IMIGLUCERASE
     Indication: GAUCHER^S DISEASE
     Dosage: DOSE:50.87 UNIT(S)/KILOGRAM BODYWEIGHT
     Route: 041
     Dates: start: 19940728
  20. CEREZYME [Suspect]
     Active Substance: IMIGLUCERASE
     Indication: LIPIDOSIS
     Dosage: DOSE:50.87 UNIT(S)/KILOGRAM BODYWEIGHT
     Route: 041
     Dates: start: 19940728

REACTIONS (2)
  - Localised infection [Not Recovered/Not Resolved]
  - Osteomyelitis [Not Recovered/Not Resolved]
